FAERS Safety Report 18348317 (Version 1)
Quarter: 2020Q4

REPORT INFORMATION
  Report Type: Report from Study
  Country: None (occurrence: GB)
  Receive Date: 20201006
  Receipt Date: 20201006
  Transmission Date: 20210114
  Serious: Yes (Other)
  Sender: FDA-Public Use
  Company Number: GB-ABBVIE-20K-167-3589140-00

PATIENT
  Age: 60 Year
  Sex: Female

DRUGS (6)
  1. AMGEVITA [Suspect]
     Active Substance: ADALIMUMAB
     Dosage: 40 MILLIGRAM, QWK
     Route: 065
  2. HUMIRA [Suspect]
     Active Substance: ADALIMUMAB
     Indication: PRODUCT USED FOR UNKNOWN INDICATION
     Route: 058
  3. AMGEVITA [Suspect]
     Active Substance: ADALIMUMAB
     Dosage: 40 MILLIGRAM, QWK
     Route: 065
  4. AMGEVITA [Suspect]
     Active Substance: ADALIMUMAB
     Indication: CROHN^S DISEASE
     Dosage: 40 MILLIGRAM, QWK
     Route: 065
  5. AMGEVITA [Suspect]
     Active Substance: ADALIMUMAB
     Dosage: 40 MILLIGRAM, QWK
     Route: 065
  6. AMGEVITA [Suspect]
     Active Substance: ADALIMUMAB
     Dosage: 40 MILLIGRAM, QWK
     Route: 065
     Dates: start: 201911

REACTIONS (10)
  - Drug dose omission by device [Unknown]
  - Device difficult to use [Unknown]
  - Device use error [Unknown]
  - Thrombosis [Unknown]
  - Injection site bruising [Recovering/Resolving]
  - Illness [Unknown]
  - Injury associated with device [Unknown]
  - Rheumatoid arthritis [Unknown]
  - Off label use [Unknown]
  - Injection site swelling [Recovering/Resolving]

NARRATIVE: CASE EVENT DATE: 202007
